FAERS Safety Report 7020203-X (Version None)
Quarter: 2010Q3

REPORT INFORMATION
  Report Type: 
  Country: None (occurrence: None)
  Receive Date: 20100929
  Receipt Date: 20100916
  Transmission Date: 20110219
  Serious: Yes (Other)
  Sender: FDA-Public Use
  Company Number: PHHY2010US63514

PATIENT
  Age: 46 Year
  Sex: Male

DRUGS (1)
  1. DIOVAN [Suspect]
     Dosage: UNK

REACTIONS (2)
  - ANGIOEDEMA [None]
  - CARDIAC FAILURE CONGESTIVE [None]
